FAERS Safety Report 5786072-0 (Version None)
Quarter: 2008Q2

REPORT INFORMATION
  Report Type: 
  Country: None (occurrence: None)
  Receive Date: 20080620
  Receipt Date: 20080620
  Transmission Date: 20081010
  Serious: No
  Sender: FDA-Public Use
  Company Number: None

PATIENT
  Sex: Female

DRUGS (2)
  1. CREST/PROHEALTH, 6.0 OUNCE TUBE, PROCTOR AND GAMBLE [Suspect]
     Dates: start: 20080506, end: 20080507
  2. CREST/PROHEALTH, 6.0 OUNCE TUBE, PROCTOR AND GAMBLE [Suspect]
     Dates: start: 20080521, end: 20080522

REACTIONS (5)
  - DIARRHOEA [None]
  - NAUSEA [None]
  - SWOLLEN TONGUE [None]
  - TONGUE DISCOLOURATION [None]
  - TOOTH DISCOLOURATION [None]
